FAERS Safety Report 8279041-2 (Version None)
Quarter: 2012Q2

REPORT INFORMATION
  Report Type: 
  Country: None (occurrence: None)
  Receive Date: 20120412
  Receipt Date: 20111227
  Transmission Date: 20120825
  Serious: No
  Sender: FDA-Public Use
  Company Number: US-ASTRAZENECA-2011SE78626

PATIENT
  Age: 59 Year
  Sex: Male

DRUGS (9)
  1. METOPROLOL TARTRATE [Suspect]
     Route: 048
  2. ALLOPURINOL [Concomitant]
  3. PIOGLITAZONE [Concomitant]
  4. LISINOPRIL [Suspect]
     Route: 048
  5. ASPIRIN [Concomitant]
  6. NEXIUM [Suspect]
     Route: 048
  7. GLIPIZIDE [Concomitant]
     Dosage: ONE IN THE MORNING AND ONE HALF IN THE EVENING
  8. PRAVACHOL [Concomitant]
  9. CARVEDILOL [Concomitant]

REACTIONS (7)
  - TYPE 2 DIABETES MELLITUS [None]
  - HYPERLIPIDAEMIA [None]
  - GASTROOESOPHAGEAL REFLUX DISEASE [None]
  - GOUT [None]
  - ERECTILE DYSFUNCTION [None]
  - HYPERTENSION [None]
  - RENAL FAILURE [None]
